FAERS Safety Report 4370460-3 (Version None)
Quarter: 2004Q2

REPORT INFORMATION
  Report Type: 
  Country: None (occurrence: None)
  Receive Date: 20040603
  Receipt Date: 20040129
  Transmission Date: 20050107
  Serious: No
  Sender: FDA-Public Use
  Company Number: US-BRISTOL-MYERS SQUIBB COMPANY-12491858

PATIENT
  Age: 83 Year
  Sex: Female

DRUGS (4)
  1. ABILIFY [Suspect]
     Indication: DEMENTIA ALZHEIMER'S TYPE
     Dosage: STOPPED ON 26-JAN-2004; 5 MG/DAY RESTARTED ON 09-FEB-2004 DUE TO PARANOIA
     Route: 048
  2. AMANTADINE HCL [Interacting]
     Indication: INFLUENZA IMMUNISATION
     Route: 048
     Dates: start: 20040123, end: 20040126
  3. DIGOXIN [Concomitant]
     Dates: start: 20020101
  4. CALCIUM CARBONATE [Concomitant]
     Dates: start: 20030103

REACTIONS (2)
  - DRUG INTERACTION [None]
  - EXTRAPYRAMIDAL DISORDER [None]
